FAERS Safety Report 19511686 (Version 1)
Quarter: 2021Q3

REPORT INFORMATION
  Report Type: Spontaneous
  Country: US (occurrence: US)
  Receive Date: 20210709
  Receipt Date: 20210709
  Transmission Date: 20211014
  Serious: No
  Sender: FDA-Public Use
  Company Number: US-SA-2021SA224801

PATIENT
  Sex: Female

DRUGS (4)
  1. DUPIXENT [Suspect]
     Active Substance: DUPILUMAB
     Indication: DERMATITIS ATOPIC
     Dosage: 600 MG, LOADING DOSE
     Route: 058
  2. OXYCODONE [Concomitant]
     Active Substance: OXYCODONE
  3. BACLOFEN. [Concomitant]
     Active Substance: BACLOFEN
  4. LIDEX [Concomitant]
     Active Substance: FLUOCINONIDE

REACTIONS (1)
  - Product dose omission issue [Unknown]
